FAERS Safety Report 20932755 (Version 1)
Quarter: 2022Q2

REPORT INFORMATION
  Report Type: Spontaneous
  Country: US (occurrence: US)
  Receive Date: 20220608
  Receipt Date: 20220608
  Transmission Date: 20220720
  Serious: No
  Sender: FDA-Public Use
  Company Number: US-BRISTOL-MYERS SQUIBB COMPANY-2022-049536

PATIENT
  Age: 69 Year
  Sex: Male

DRUGS (1)
  1. REVLIMID [Suspect]
     Active Substance: LENALIDOMIDE
     Indication: Plasma cell myeloma
     Dosage: TAKE 1 CAPSULE (25MG TOTAL) BY MOUTH EVERY DAY FOR 14 DAYS ON, 7 DAYS OFF, REPEAT EVERY 21 DAYS
     Route: 048
     Dates: start: 20220328

REACTIONS (1)
  - Intentional product misuse [Unknown]
